FAERS Safety Report 18341655 (Version 1)
Quarter: 2020Q4

REPORT INFORMATION
  Report Type: Spontaneous
  Country: PL (occurrence: PL)
  Receive Date: 20201005
  Receipt Date: 20201005
  Transmission Date: 20210113
  Serious: Yes (Other)
  Sender: FDA-Public Use
  Company Number: PL-BIOGEN-2020BI00929402

PATIENT
  Age: 28 Year
  Sex: Male

DRUGS (4)
  1. SPINRAZA [Suspect]
     Active Substance: NUSINERSEN
     Dosage: 12MG/5ML
     Route: 037
     Dates: start: 20200923
  2. SPINRAZA [Suspect]
     Active Substance: NUSINERSEN
     Dosage: 12MG/5ML
     Route: 037
     Dates: start: 20200820
  3. SPINRAZA [Suspect]
     Active Substance: NUSINERSEN
     Indication: SPINAL MUSCULAR ATROPHY
     Dosage: 12MG/5ML
     Route: 037
     Dates: start: 20200806
  4. SPINRAZA [Suspect]
     Active Substance: NUSINERSEN
     Dosage: 12MG/5ML
     Route: 037
     Dates: start: 20200924

REACTIONS (4)
  - Gamma-glutamyltransferase increased [Unknown]
  - Aspartate aminotransferase increased [Unknown]
  - Alanine aminotransferase increased [Unknown]
  - Blood bilirubin increased [Unknown]

NARRATIVE: CASE EVENT DATE: 20200916
